FAERS Safety Report 4696320-6 (Version None)
Quarter: 2005Q2

REPORT INFORMATION
  Report Type: 
  Country: None (occurrence: None)
  Receive Date: 20050621
  Receipt Date: 20050609
  Transmission Date: 20051028
  Serious: Yes (Hospitalization)
  Sender: FDA-Public Use
  Company Number: PHBS2005JP08441

PATIENT
  Age: 88 Year
  Sex: Male

DRUGS (1)
  1. NITRODERM [Suspect]
     Indication: ANGINA PECTORIS
     Route: 062

REACTIONS (1)
  - PANCYTOPENIA [None]
